FAERS Safety Report 26149785 (Version 1)
Quarter: 2025Q4

REPORT INFORMATION
  Report Type: Spontaneous
  Country: US (occurrence: None)
  Receive Date: 20251211
  Receipt Date: 20251211
  Transmission Date: 20260117
  Serious: Yes (Hospitalization)
  Sender: FDA-CTU
  Company Number: None

PATIENT
  Age: 67 Year
  Sex: Female

DRUGS (14)
  1. DALFAMPRIDINE [Suspect]
     Active Substance: DALFAMPRIDINE
     Indication: Multiple sclerosis
     Dosage: OTHER STRENGTH : 10 ER MG ;?OTHER QUANTITY : 10MG ER;?FREQUENCY : TWICE A DAY;
     Route: 048
     Dates: start: 20240405
  2. MNEXSPIKE 12+ (COVID 2025-26) 0.2ML [Concomitant]
  3. FLUZONE HD 65+ 0.5ML IM 2025-26 [Concomitant]
  4. BACLOFEN 20MG TABLETS [Concomitant]
  5. VITAMIN B12 2000MCC TABLETS 60^S [Concomitant]
  6. FUROSEMIDE [Concomitant]
     Active Substance: FUROSEMIDE
  7. OZEMPIC 2MG PER DOSE (8MG/3ML) PFP [Concomitant]
  8. DULOXETINE [Concomitant]
     Active Substance: DULOXETINE
  9. MELOXICAM [Concomitant]
     Active Substance: MELOXICAM
  10. PREGABALIN 100MG CAPSULES [Concomitant]
  11. PANTOPRAZOLE [Concomitant]
     Active Substance: PANTOPRAZOLE
  12. LEVOTHYROXINE 0.150MG (150MCG) TAB [Concomitant]
  13. SERTRALINE [Concomitant]
     Active Substance: SERTRALINE HYDROCHLORIDE
  14. PREDNISONE [Concomitant]
     Active Substance: PREDNISONE

REACTIONS (1)
  - Infection [None]

NARRATIVE: CASE EVENT DATE: 20251201
